FAERS Safety Report 6912823-5 (Version None)
Quarter: 2010Q3

REPORT INFORMATION
  Report Type: 
  Country: None (occurrence: None)
  Receive Date: 20100806
  Receipt Date: 20090123
  Transmission Date: 20110219
  Serious: Yes (Other)
  Sender: FDA-Public Use
  Company Number: US-PFIZER INC-2008097256

PATIENT
  Age: 59 Year
  Sex: Female

DRUGS (2)
  1. VFEND [Suspect]
     Dosage: 200 MG, 1X/DAY
     Route: 048
     Dates: end: 20081117
  2. VFEND [Suspect]
     Dosage: UNK
     Dates: start: 20080101

REACTIONS (1)
  - THROMBOCYTOPENIA [None]
